FAERS Safety Report 6537085-2 (Version None)
Quarter: 2010Q1

REPORT INFORMATION
  Report Type: 
  Country: None (occurrence: None)
  Receive Date: 20100114
  Receipt Date: 20100106
  Transmission Date: 20100710
  Serious: Yes (Hospitalization)
  Sender: FDA-Public Use
  Company Number: BR-ASTRAZENECA-2010SE00670

PATIENT
  Age: 35 Year
  Sex: Female

DRUGS (3)
  1. SEROQUEL [Suspect]
     Dosage: 28 TABLETS
     Route: 048
     Dates: start: 20100102, end: 20100102
  2. CLONAZEPAM [Concomitant]
     Dosage: 10 TABLETS
     Route: 048
     Dates: start: 20100102, end: 20100102
  3. VALPROATE SODIUM [Concomitant]
     Dosage: 25 TABLETS
     Route: 048
     Dates: start: 20100102, end: 20100102

REACTIONS (2)
  - OVERDOSE [None]
  - SOMNOLENCE [None]
